FAERS Safety Report 21449354 (Version 1)
Quarter: 2022Q4

REPORT INFORMATION
  Report Type: Spontaneous
  Country: US (occurrence: US)
  Receive Date: 20221013
  Receipt Date: 20221013
  Transmission Date: 20230112
  Serious: Yes (Hospitalization)
  Sender: FDA-Public Use
  Company Number: US-SA-SAC20221006000239

PATIENT
  Age: 85 Year
  Weight: 63 kg

DRUGS (3)
  1. PLAVIX [Suspect]
     Active Substance: CLOPIDOGREL BISULFATE
     Indication: Blood pressure measurement
     Dosage: UNK
     Route: 065
  2. ENZALUTAMIDE [Suspect]
     Active Substance: ENZALUTAMIDE
     Indication: Prostate cancer
     Dosage: 160 MG, QD
     Route: 048
     Dates: start: 20220315
  3. ENZALUTAMIDE [Suspect]
     Active Substance: ENZALUTAMIDE
     Dosage: 80 MG QD
     Route: 048

REACTIONS (6)
  - Chest pain [Unknown]
  - Blood pressure diastolic decreased [Unknown]
  - Fatigue [Unknown]
  - Bedridden [Unknown]
  - Dizziness [Unknown]
  - Drug interaction [Unknown]

NARRATIVE: CASE EVENT DATE: 20220301
